FAERS Safety Report 15814932 (Version 1)
Quarter: 2019Q1

REPORT INFORMATION
  Report Type: Spontaneous
  Country: FR (occurrence: FR)
  Receive Date: 20190111
  Receipt Date: 20190111
  Transmission Date: 20190417
  Serious: Yes (Hospitalization)
  Sender: FDA-Public Use
  Company Number: FR-ACCORD-101609

PATIENT
  Age: 68 Year
  Sex: Female
  Weight: 105 kg

DRUGS (6)
  1. ALPRAZOLAM. [Suspect]
     Active Substance: ALPRAZOLAM
     Dosage: DOSE INCONNUE
     Route: 048
  2. IMOVANE [Suspect]
     Active Substance: ZOPICLONE
     Dosage: DOSE INCONNUE
     Route: 048
  3. SKENAN [Suspect]
     Active Substance: MORPHINE SULFATE
     Dosage: QUANTITY SUPPOSEDLY INGESTED 1 BOX
     Route: 048
  4. SERTRALINE [Suspect]
     Active Substance: SERTRALINE HYDROCHLORIDE
     Route: 048
  5. ACTISKENAN [Suspect]
     Active Substance: MORPHINE SULFATE
     Dosage: QUANTITY SUPPOSED TO BE INGESTED: 1 BOX
     Route: 048
  6. IXPRIM [Suspect]
     Active Substance: ACETAMINOPHEN\TRAMADOL HYDROCHLORIDE
     Dosage: SEVERAL BOXES (UNKNOWN DOSE)
     Route: 048

REACTIONS (6)
  - Bradypnoea [Recovered/Resolved]
  - Toxicity to various agents [Unknown]
  - Intentional overdose [Unknown]
  - Coma [Recovered/Resolved]
  - Hypotension [Recovered/Resolved]
  - Bradycardia [Recovered/Resolved]

NARRATIVE: CASE EVENT DATE: 20170427
